FAERS Safety Report 15821452 (Version 1)
Quarter: 2019Q1

REPORT INFORMATION
  Report Type: Report from Study
  Country: US (occurrence: US)
  Receive Date: 20190114
  Receipt Date: 20190114
  Transmission Date: 20190417
  Serious: Yes (Hospitalization, Other)
  Sender: FDA-Public Use
  Company Number: US-MYLANLABS-2019M1001283

PATIENT
  Age: 82 Year
  Sex: Male

DRUGS (5)
  1. CIDOFOVIR. [Suspect]
     Active Substance: CIDOFOVIR
     Indication: ADENOVIRUS INFECTION
     Dosage: INITIATED 14 DAYS POSTDIAGNOSIS OF DISSEMINATED ADV DISEASE; 1MG/KG/DOSE THREE TIMES A WEEK; RECE...
     Route: 042
  2. PROBENECID. [Concomitant]
     Active Substance: PROBENECID
     Indication: RENAL DISORDER PROPHYLAXIS
     Dosage: 2 G 3 HRS BEFORE AND 1 G 2 HRS AND 8 HRS AFTER CIDOFOVIR ADMINISTRATION
     Route: 048
  3. MYCOPHENOLATE MOFETIL. [Suspect]
     Active Substance: MYCOPHENOLATE MOFETIL
     Indication: IMMUNOSUPPRESSANT DRUG THERAPY
     Dosage: 1G EVERY MORNING AND 0.5G EVERY EVENING
     Route: 065
  4. TACROLIMUS. [Suspect]
     Active Substance: TACROLIMUS
     Indication: IMMUNOSUPPRESSANT DRUG THERAPY
     Route: 065
  5. IMMUNOGLOBULIN                     /00025201/ [Concomitant]
     Active Substance: HUMAN IMMUNOGLOBULIN G
     Indication: ADENOVIRUS INFECTION
     Dosage: INITIATED 13 DAYS POSTDIAGNOSIS OF DISSEMINATED ADV DISEASE; 400MG/KG/DOSE; RECEIVED ONE DOSE
     Route: 042

REACTIONS (4)
  - Adenovirus infection [Recovered/Resolved]
  - Kidney fibrosis [Unknown]
  - Renal tubular acidosis [Unknown]
  - Renal tubular atrophy [Unknown]
